FAERS Safety Report 17297513 (Version 1)
Quarter: 2020Q1

REPORT INFORMATION
  Report Type: Spontaneous
  Country: IE (occurrence: IE)
  Receive Date: 20200122
  Receipt Date: 20200122
  Transmission Date: 20200409
  Serious: Yes (Other)
  Sender: FDA-Public Use
  Company Number: IE-SCIEGEN PHARMACEUTICALS INC-2020SCILIT00008

PATIENT
  Age: 31 Year
  Sex: Male

DRUGS (2)
  1. FLUOXETINE [Suspect]
     Active Substance: FLUOXETINE HYDROCHLORIDE
  2. CLOMIPRAMINE [Interacting]
     Active Substance: CLOMIPRAMINE

REACTIONS (1)
  - Disease recurrence [Recovering/Resolving]
